FAERS Safety Report 9278003 (Version 1)
Quarter: 2013Q2

REPORT INFORMATION
  Report Type: Spontaneous
  Country: CA (occurrence: CA)
  Receive Date: 20130508
  Receipt Date: 20130508
  Transmission Date: 20140414
  Serious: Yes (Hospitalization, Other)
  Sender: FDA-Public Use
  Company Number: CA-PFIZER INC-2013141127

PATIENT
  Age: 64 Year
  Sex: Male

DRUGS (2)
  1. CELEBREX [Suspect]
     Dosage: 200 MG 2X/DAY WHILE EATING BREAKFAST AND DINNER
  2. CRESTOR [Concomitant]
     Dosage: 10 MG, AT BEDTIME

REACTIONS (1)
  - Artery dissection [Unknown]
